FAERS Safety Report 9946238 (Version 1)
Quarter: 2014Q1

REPORT INFORMATION
  Report Type: Spontaneous
  Country: US (occurrence: US)
  Receive Date: 20140303
  Receipt Date: 20140303
  Transmission Date: 20141002
  Serious: No
  Sender: FDA-Public Use
  Company Number: US-AMGEN-USASP2013083799

PATIENT
  Age: 47 Year
  Sex: Female
  Weight: 113.38 kg

DRUGS (3)
  1. ENBREL [Suspect]
     Indication: PRODUCT USED FOR UNKNOWN INDICATION
     Dosage: 50 MG, QWK
     Route: 058
  2. FOLIC ACID [Concomitant]
     Dosage: UNK
  3. MULTIVITAMINS, PLAIN [Concomitant]
     Dosage: UNK

REACTIONS (7)
  - Rash pruritic [Unknown]
  - Rash erythematous [Unknown]
  - Skin exfoliation [Unknown]
  - Joint swelling [Unknown]
  - Local swelling [Unknown]
  - Chills [Unknown]
  - Chapped lips [Unknown]
